FAERS Safety Report 10224976 (Version 1)
Quarter: 2014Q2

REPORT INFORMATION
  Report Type: Spontaneous
  Country: GB (occurrence: GB)
  Receive Date: 20140609
  Receipt Date: 20140609
  Transmission Date: 20141212
  Serious: Yes (Other)
  Sender: FDA-Public Use
  Company Number: GB-TEVA-485309ISR

PATIENT
  Age: 17 Year
  Sex: Female

DRUGS (8)
  1. CITALOPRAM [Suspect]
     Indication: POST-TRAUMATIC STRESS DISORDER
     Dosage: 40 MG
     Route: 065
  2. CITALOPRAM [Suspect]
     Indication: AUTISM SPECTRUM DISORDER
  3. DIAZEPAM [Suspect]
     Indication: POST-TRAUMATIC STRESS DISORDER
     Route: 065
  4. DIAZEPAM [Suspect]
     Indication: AUTISM SPECTRUM DISORDER
  5. OLANZAPINE [Suspect]
     Indication: AUTISM SPECTRUM DISORDER
  6. OLANZAPINE [Suspect]
     Indication: POST-TRAUMATIC STRESS DISORDER
     Dosage: 20 MG, UNK
     Route: 065
  7. VALIUM [Suspect]
     Indication: AUTISM SPECTRUM DISORDER
  8. VALIUM [Suspect]
     Indication: PRODUCT USED FOR UNKNOWN INDICATION
     Dosage: UNK, UNKNOWN
     Route: 065

REACTIONS (3)
  - Depression [Unknown]
  - Psychotic disorder [Unknown]
  - Anxiety [Unknown]
